FAERS Safety Report 9910343 (Version 1)
Quarter: 2014Q1

REPORT INFORMATION
  Report Type: Spontaneous
  Country: US (occurrence: CH)
  Receive Date: 20140219
  Receipt Date: 20140219
  Transmission Date: 20141002
  Serious: Yes (Disabling)
  Sender: FDA-Public Use
  Company Number: CH-FRI-1000054314

PATIENT
  Age: 74 Year
  Sex: Female

DRUGS (1)
  1. ASENAPINE [Suspect]
     Indication: BIPOLAR DISORDER
     Dosage: 10 MG

REACTIONS (3)
  - Incontinence [Not Recovered/Not Resolved]
  - Gait disturbance [Not Recovered/Not Resolved]
  - Parkinsonism [Not Recovered/Not Resolved]
